FAERS Safety Report 24196102 (Version 2)
Quarter: 2025Q1

REPORT INFORMATION
  Report Type: Report from Study
  Country: GB (occurrence: GB)
  Receive Date: 20240809
  Receipt Date: 20250210
  Transmission Date: 20250409
  Serious: No
  Sender: SANDOZ
  Company Number: GB-SANDOZ-SDZ2024GB071493

PATIENT
  Sex: Female

DRUGS (1)
  1. OMNITROPE [Suspect]
     Active Substance: SOMATROPIN
     Indication: Hyperpituitarism
     Dosage: 0.10 MG, QD
     Route: 058

REACTIONS (3)
  - Expired product administered [Unknown]
  - Product availability issue [Unknown]
  - Product use in unapproved indication [Unknown]
